FAERS Safety Report 7629379-4 (Version None)
Quarter: 2011Q3

REPORT INFORMATION
  Report Type: 
  Country: None (occurrence: None)
  Receive Date: 20110722
  Receipt Date: 20110712
  Transmission Date: 20111222
  Serious: Yes (Other)
  Sender: FDA-Public Use
  Company Number: NO-JNJFOC-20110301428

PATIENT
  Age: 40 Year

DRUGS (4)
  1. REMICADE [Suspect]
     Dosage: 3RD INFUSION
     Route: 042
  2. VENOFER [Suspect]
     Indication: CROHN'S DISEASE
  3. REMICADE [Suspect]
     Indication: CROHN'S DISEASE
     Route: 042
  4. VENOFER [Suspect]

REACTIONS (3)
  - SYNCOPE [None]
  - URTICARIA [None]
  - HYPOTENSION [None]
